FAERS Safety Report 14454278 (Version 1)
Quarter: 2018Q1

REPORT INFORMATION
  Report Type: Spontaneous
  Country: US (occurrence: US)
  Receive Date: 20180129
  Receipt Date: 20180129
  Transmission Date: 20180509
  Serious: No
  Sender: FDA-Public Use
  Company Number: US-PERRIGO-17US000490

PATIENT
  Age: 62 Year
  Sex: Female
  Weight: 73.92 kg

DRUGS (4)
  1. TRIAMTERENE. [Concomitant]
     Active Substance: TRIAMTERENE
     Indication: HYPERTENSION
     Dosage: UNK
     Route: 065
     Dates: start: 2013
  2. TRETINOIN. [Suspect]
     Active Substance: TRETINOIN
     Indication: PIGMENTATION DISORDER
     Dosage: SMALL AMOUNT, QHS
     Route: 061
     Dates: start: 20161216, end: 20170103
  3. NASONEX [Concomitant]
     Active Substance: MOMETASONE FUROATE
     Indication: SINUSITIS
     Dosage: UNK
     Route: 065
     Dates: start: 20161222, end: 20161224
  4. AMOXICILLIN. [Concomitant]
     Active Substance: AMOXICILLIN
     Indication: SINUSITIS
     Dosage: UNK
     Route: 065
     Dates: start: 20161222, end: 20161228

REACTIONS (5)
  - Application site exfoliation [Not Recovered/Not Resolved]
  - Drug ineffective for unapproved indication [Unknown]
  - Application site pain [Not Recovered/Not Resolved]
  - Off label use [Recovered/Resolved]
  - Application site vesicles [Recovering/Resolving]

NARRATIVE: CASE EVENT DATE: 20161216
